FAERS Safety Report 15661146 (Version 7)
Quarter: 2024Q2

REPORT INFORMATION
  Report Type: Report from Study
  Country: CO (occurrence: CO)
  Receive Date: 20181127
  Receipt Date: 20240620
  Transmission Date: 20240716
  Serious: Yes (Other)
  Sender: FDA-Public Use
  Company Number: CO-002147023-PHHY2018CO159906

PATIENT

DRUGS (5)
  1. RUXOLITINIB [Suspect]
     Active Substance: RUXOLITINIB
     Indication: Myelofibrosis
     Dosage: 20 MG, Q12H (EVERY 12 HOURS)
     Route: 048
     Dates: start: 20130905
  2. RUXOLITINIB [Suspect]
     Active Substance: RUXOLITINIB
     Dosage: UNK
     Route: 065
  3. RUXOLITINIB [Suspect]
     Active Substance: RUXOLITINIB
     Dosage: 20 MG, Q8H (EVERY 8 HOURS)
     Route: 048
  4. HYDROXYUREA [Suspect]
     Active Substance: HYDROXYUREA
     Indication: Product used for unknown indication
     Dosage: UNK
     Route: 065
  5. ACETAMINOPHEN [Concomitant]
     Active Substance: ACETAMINOPHEN
     Indication: Product used for unknown indication
     Dosage: UNK UNK, PRN
     Route: 065

REACTIONS (10)
  - Inflammation [Unknown]
  - Breast cancer [Unknown]
  - Second primary malignancy [Unknown]
  - Discouragement [Unknown]
  - Platelet count increased [Unknown]
  - Pruritus [Unknown]
  - Decreased immune responsiveness [Unknown]
  - Off label use [Unknown]
  - Malaise [Unknown]
  - White blood cell count decreased [Unknown]

NARRATIVE: CASE EVENT DATE: 20200101
